FAERS Safety Report 13026279 (Version 1)
Quarter: 2016Q4

REPORT INFORMATION
  Report Type: Spontaneous
  Country: US (occurrence: US)
  Receive Date: 20161214
  Receipt Date: 20161214
  Transmission Date: 20170207
  Serious: Yes (Other)
  Sender: FDA-Public Use
  Company Number: US-JNJFOC-20161209341

PATIENT
  Age: 27 Year
  Sex: Female

DRUGS (1)
  1. LISTERINE TOOTHPASTE UNSPECIFIED [Suspect]
     Active Substance: EUCALYPTOL\MENTHOL\METHYL SALICYLATE\SODIUM MONOFLUOROPHOSPHATE\THYMOL
     Indication: PRODUCT USED FOR UNKNOWN INDICATION
     Route: 048

REACTIONS (1)
  - Acquired immunodeficiency syndrome [Unknown]
